FAERS Safety Report 10012644 (Version 3)
Quarter: 2014Q4

REPORT INFORMATION
  Report Type: Report from Study
  Country: PT (occurrence: PT)
  Receive Date: 20140314
  Receipt Date: 20141224
  Transmission Date: 20150528
  Serious: Yes (Hospitalization, Other)
  Sender: FDA-Public Use
  Company Number: PHHY2014PT030103

PATIENT
  Age: 27 Year
  Sex: Male

DRUGS (1)
  1. GILENYA [Suspect]
     Active Substance: FINGOLIMOD HYDROCHLORIDE
     Indication: MULTIPLE SCLEROSIS
     Dosage: 0.5 MG, QD
     Route: 048
     Dates: start: 20131120, end: 20140309

REACTIONS (16)
  - Seizure [Unknown]
  - CSF protein abnormal [Recovered/Resolved with Sequelae]
  - Aphasia [Recovered/Resolved with Sequelae]
  - Hemianopia homonymous [Unknown]
  - Speech disorder [Recovering/Resolving]
  - Pleocytosis [Recovered/Resolved with Sequelae]
  - Central nervous system lesion [Recovered/Resolved with Sequelae]
  - Cerebellar syndrome [Unknown]
  - Stupor [Unknown]
  - Altered state of consciousness [Recovered/Resolved with Sequelae]
  - Diarrhoea [Recovered/Resolved with Sequelae]
  - Acute disseminated encephalomyelitis [Recovered/Resolved with Sequelae]
  - Encephalopathy [Unknown]
  - Bladder dysfunction [Unknown]
  - Pyrexia [Recovered/Resolved with Sequelae]
  - Paresis [Unknown]

NARRATIVE: CASE EVENT DATE: 20140309
